FAERS Safety Report 9554973 (Version 2)
Quarter: 2013Q4

REPORT INFORMATION
  Report Type: Spontaneous
  Country: US (occurrence: US)
  Receive Date: 20130926
  Receipt Date: 20131105
  Transmission Date: 20140711
  Serious: Yes (Other)
  Sender: FDA-Public Use
  Company Number: US-BRISTOL-MYERS SQUIBB COMPANY-19391325

PATIENT
  Age: 57 Year
  Sex: Female

DRUGS (8)
  1. BYDUREON [Suspect]
     Indication: TYPE 2 DIABETES MELLITUS
     Route: 058
     Dates: start: 20130731, end: 20130828
  2. ATIVAN [Concomitant]
  3. BENZTROPINE [Concomitant]
  4. DEXLANSOPRAZOLE [Concomitant]
  5. LANTUS [Concomitant]
  6. LIPITOR [Concomitant]
  7. LISINOPRIL [Concomitant]
  8. TOPROL XL [Concomitant]

REACTIONS (4)
  - Amylase increased [Recovering/Resolving]
  - Nausea [Recovering/Resolving]
  - Vomiting [Recovering/Resolving]
  - Rash [Recovering/Resolving]
